FAERS Safety Report 7526069-3 (Version None)
Quarter: 2011Q2

REPORT INFORMATION
  Report Type: 
  Country: None (occurrence: None)
  Receive Date: 20110606
  Receipt Date: 20110602
  Transmission Date: 20111010
  Serious: Yes (Hospitalization)
  Sender: FDA-Public Use
  Company Number: US-BRISTOL-MYERS SQUIBB COMPANY-15588924

PATIENT
  Age: 46 Year
  Sex: Male

DRUGS (4)
  1. BLINDED: SAXAGLIPTIN [Suspect]
     Indication: TYPE 2 DIABETES MELLITUS
     Dosage: INTERRUPTED ON 26FEB2011.
     Dates: start: 20110202, end: 20110226
  2. PLACEBO [Suspect]
     Indication: TYPE 2 DIABETES MELLITUS
     Dates: end: 20110226
  3. NPH INSULIN [Suspect]
     Indication: TYPE 2 DIABETES MELLITUS
  4. LISINOPRIL [Suspect]

REACTIONS (1)
  - PANCREATITIS [None]
